FAERS Safety Report 11710438 (Version 2)
Quarter: 2015Q4

REPORT INFORMATION
  Report Type: Spontaneous
  Country: US (occurrence: US)
  Receive Date: 20151104
  Receipt Date: 20151110
  Transmission Date: 20160304
  Serious: No
  Sender: FDA-Public Use
  Company Number: US-ELI_LILLY_AND_COMPANY-US201109002591

PATIENT
  Age: 74 Year
  Sex: Female

DRUGS (4)
  1. PLAVIX [Concomitant]
     Active Substance: CLOPIDOGREL BISULFATE
  2. FORTEO [Suspect]
     Active Substance: TERIPARATIDE
     Dosage: 20 UG, QD
     Route: 065
  3. FORTEO [Suspect]
     Active Substance: TERIPARATIDE
     Indication: OSTEOPOROSIS
     Dosage: 20 UG, QD
     Route: 065
     Dates: start: 20110823
  4. FORTEO [Suspect]
     Active Substance: TERIPARATIDE
     Dosage: 20 UG, QD

REACTIONS (23)
  - Expired product administered [Unknown]
  - Bone pain [Not Recovered/Not Resolved]
  - Headache [Not Recovered/Not Resolved]
  - Injection site bruising [Unknown]
  - Malaise [Unknown]
  - Myalgia [Unknown]
  - Pain in extremity [Not Recovered/Not Resolved]
  - Feeling hot [Unknown]
  - Parkinson^s disease [Unknown]
  - Bone disorder [Unknown]
  - Gait disturbance [Unknown]
  - Increased tendency to bruise [Unknown]
  - Injection site pain [Not Recovered/Not Resolved]
  - Influenza [Unknown]
  - Gait disturbance [Unknown]
  - Fall [Recovered/Resolved]
  - Eating disorder [Unknown]
  - Fatigue [Unknown]
  - Fall [Unknown]
  - Injection site erythema [Unknown]
  - Flank pain [Not Recovered/Not Resolved]
  - Burning sensation [Unknown]
  - Contusion [Unknown]

NARRATIVE: CASE EVENT DATE: 201111
